FAERS Safety Report 12266492 (Version 1)
Quarter: 2016Q2

REPORT INFORMATION
  Report Type: Spontaneous
  Country: US (occurrence: US)
  Receive Date: 20160414
  Receipt Date: 20160414
  Transmission Date: 20160815
  Serious: Yes (Other)
  Sender: FDA-Public Use
  Company Number: US-BEH-2016061124

PATIENT
  Sex: Female
  Weight: 110 kg

DRUGS (25)
  1. EPIPEN [Concomitant]
     Active Substance: EPINEPHRINE
  2. KLOR-CON [Concomitant]
     Active Substance: POTASSIUM CHLORIDE
  3. HIZENTRA [Suspect]
     Active Substance: HUMAN IMMUNOGLOBULIN G
     Indication: IMMUNODEFICIENCY COMMON VARIABLE
     Route: 058
  4. LIDOCAINE. [Concomitant]
     Active Substance: LIDOCAINE
  5. OCTREOTIDE. [Concomitant]
     Active Substance: OCTREOTIDE
  6. CYMBALTA [Concomitant]
     Active Substance: DULOXETINE HYDROCHLORIDE
  7. BOTOX [Concomitant]
     Active Substance: ONABOTULINUMTOXINA
  8. NAPROXEN. [Concomitant]
     Active Substance: NAPROXEN
  9. LAMOTRIGINE. [Concomitant]
     Active Substance: LAMOTRIGINE
  10. VITAMIN B12 [Concomitant]
     Active Substance: CYANOCOBALAMIN
  11. CELEBREX [Concomitant]
     Active Substance: CELECOXIB
  12. AZO CRANBERRY [Concomitant]
  13. ACARBOSE. [Concomitant]
     Active Substance: ACARBOSE
  14. OMEPRAZOLE. [Concomitant]
     Active Substance: OMEPRAZOLE
  15. OMEGA 3 [Concomitant]
     Active Substance: OMEGA-3 FATTY ACIDS
  16. DIPHENHYDRAMINE. [Concomitant]
     Active Substance: DIPHENHYDRAMINE
  17. NASONEX [Concomitant]
     Active Substance: MOMETASONE FUROATE
  18. SIMVASTATIN. [Concomitant]
     Active Substance: SIMVASTATIN
  19. SEROQUEL [Concomitant]
     Active Substance: QUETIAPINE FUMARATE
  20. VITAMIN D [Concomitant]
     Active Substance: CHOLECALCIFEROL
  21. GABAPENTIN. [Concomitant]
     Active Substance: GABAPENTIN
  22. SINGULAIR [Concomitant]
     Active Substance: MONTELUKAST SODIUM
  23. NALTREXONE [Concomitant]
     Active Substance: NALTREXONE
  24. MULTIVITAMINS [Concomitant]
     Active Substance: VITAMINS
  25. VANIQA [Concomitant]
     Active Substance: EFLORNITHINE HYDROCHLORIDE

REACTIONS (1)
  - Pneumonia [Unknown]
